FAERS Safety Report 7648697-7 (Version None)
Quarter: 2011Q3

REPORT INFORMATION
  Report Type: 
  Country: None (occurrence: None)
  Receive Date: 20110801
  Receipt Date: 20110722
  Transmission Date: 20111222
  Serious: Yes (Hospitalization, Other)
  Sender: FDA-Public Use
  Company Number: PHHY2011BR66630

PATIENT
  Sex: Male

DRUGS (1)
  1. EXELON [Suspect]
     Indication: MEMORY IMPAIRMENT
     Dosage: 9MG/5CM2, ONE PATCH DAILY
     Route: 062

REACTIONS (2)
  - POLYNEUROPATHY [None]
  - HYPOAESTHESIA [None]
